FAERS Safety Report 14185768 (Version 2)
Quarter: 2018Q1

REPORT INFORMATION
  Report Type: Spontaneous
  Country: FR (occurrence: FR)
  Receive Date: 20171114
  Receipt Date: 20180220
  Transmission Date: 20180508
  Serious: Yes (Hospitalization)
  Sender: FDA-Public Use
  Company Number: FR-AUROBINDO-AUR-APL-2017-43477

PATIENT
  Age: 90 Year
  Sex: Female
  Weight: 62 kg

DRUGS (9)
  1. LEVOTHYROX [Concomitant]
     Active Substance: LEVOTHYROXINE
     Indication: HYPOTHYROIDISM
     Dosage: 112.5 U/G, UNK
     Route: 048
  2. LEVOTHYROX [Concomitant]
     Active Substance: LEVOTHYROXINE
  3. ESIDREX [Suspect]
     Active Substance: HYDROCHLOROTHIAZIDE
     Indication: HYPERTENSION
     Dosage: 0.5 DF, DAILY
     Route: 048
     Dates: start: 20170922, end: 20171025
  4. ELIQUIS [Concomitant]
     Active Substance: APIXABAN
     Indication: CEREBROVASCULAR ACCIDENT PROPHYLAXIS
     Dosage: 2 DF, UNK
     Route: 048
  5. RAMIPRIL MYLAN [Suspect]
     Active Substance: RAMIPRIL
     Indication: HYPERTENSION
     Dosage: 5 MG, DAILY
     Route: 048
  6. BISOCE [Concomitant]
     Active Substance: BISOPROLOL
     Indication: CARDIAC FAILURE CHRONIC
     Dosage: 2 DF, UNK
     Route: 048
  7. SPECIAFOLDINE [Concomitant]
     Active Substance: FOLIC ACID
     Indication: FOLATE DEFICIENCY
     Dosage: 1 DF, DAILY
     Route: 048
     Dates: start: 20170922
  8. ESCITALOPRAM ARROW FILM-COATED TABLET 5MG [Suspect]
     Active Substance: ESCITALOPRAM OXALATE
     Indication: DEPRESSION
     Dosage: 5 MG, DAILY
     Route: 048
     Dates: start: 20171010, end: 20171025
  9. IMOVANE [Concomitant]
     Active Substance: ZOPICLONE
     Indication: INSOMNIA
     Dosage: 0.5 DF, DAILY
     Route: 048
     Dates: start: 20170922

REACTIONS (2)
  - Hyponatraemia [Not Recovered/Not Resolved]
  - Condition aggravated [Not Recovered/Not Resolved]

NARRATIVE: CASE EVENT DATE: 20171011
